FAERS Safety Report 8830640 (Version 1)
Quarter: 2012Q4

REPORT INFORMATION
  Report Type: 
  Country: US (occurrence: US)
  Receive Date: 20121009
  Receipt Date: 20121009
  Transmission Date: 20130627
  Serious: Yes (Congenital Anomaly)
  Sender: FDA-Public Use
  Company Number: US-SHIRE-ALL1-2012-04595

PATIENT

DRUGS (7)
  1. CARBAMAZEPINE [Suspect]
     Indication: PRODUCT USED FOR UNKNOWN INDICATION
     Dosage: Unknown ( 0 mg at LMP)
     Route: 064
  2. CARBAMAZEPINE [Suspect]
     Dosage: 400 mg, Unknown (at week 11)
     Route: 064
  3. PHENYTOIN [Suspect]
     Indication: PRODUCT USED FOR UNKNOWN INDICATION
     Dosage: UNK, Unknown (0 mg at LMP)
     Route: 064
  4. PHENYTOIN [Suspect]
     Dosage: 200 mg, Unknown (at week 10)
     Route: 064
  5. PHENYTOIN [Suspect]
     Dosage: UNK, Unknown (0 mg at week 11)
     Route: 064
  6. VALPROIC ACID [Suspect]
     Indication: PRODUCT USED FOR UNKNOWN INDICATION
     Dosage: 500 mg, Unknown (at LMP)
     Route: 064
  7. VALPROIC ACID [Suspect]
     Dosage: UNK, Unknown (0 mg at week 5)
     Route: 064

REACTIONS (5)
  - Single functional kidney [Unknown]
  - Kidney malformation [Unknown]
  - Cryptorchism [Unknown]
  - Maternal exposure during pregnancy [Unknown]
  - Maternal drugs affecting foetus [None]
